FAERS Safety Report 10039961 (Version 1)
Quarter: 2014Q1

REPORT INFORMATION
  Report Type: Spontaneous
  Country: CA (occurrence: CA)
  Receive Date: 20140326
  Receipt Date: 20140326
  Transmission Date: 20141002
  Serious: Yes (Other)
  Sender: FDA-Public Use
  Company Number: PHHY2014CA032545

PATIENT
  Age: 72 Year
  Sex: Female

DRUGS (9)
  1. ANASTROZOLE SANDOZ [Suspect]
     Dosage: 1 MG, QD
     Route: 048
  2. ARIMIDEX [Suspect]
     Dosage: 1 MG, QD
     Route: 048
  3. ATENOLOL [Concomitant]
     Indication: BLOOD PRESSURE
  4. ATORVASTATIN CALCIUM [Concomitant]
  5. DIGOXIN [Concomitant]
  6. DILTIAZEM [Concomitant]
  7. HYZAAR [Concomitant]
  8. RABEPRAZOLE [Concomitant]
  9. TYLENOL W/CODEINE [Concomitant]

REACTIONS (3)
  - Malaise [Recovered/Resolved]
  - Nausea [Recovered/Resolved]
  - Product substitution issue [Recovered/Resolved]
